FAERS Safety Report 9850555 (Version 1)
Quarter: 2013Q4

REPORT INFORMATION
  Report Type: Spontaneous
  Country: US (occurrence: None)
  Receive Date: 20131226
  Receipt Date: 20131226
  Transmission Date: 20140711
  Serious: Yes (Hospitalization)
  Sender: FDA-Public Use
  Company Number: PHEH2013US016996

PATIENT
  Age: 69 Year
  Sex: Female

DRUGS (3)
  1. VIVELLE DOT [Suspect]
     Dosage: 0.025 MG, TRANSDERMAL
     Route: 062
     Dates: end: 2012
  2. ANAFRANIL (CLOMIPRAMINE HYDROCHLORIDE) [Concomitant]
  3. LIPITOR (ATORVASTATIN CALCIUM) [Concomitant]

REACTIONS (7)
  - Cerebrovascular accident [None]
  - Pain [None]
  - Limb discomfort [None]
  - Gait disturbance [None]
  - Weight decreased [None]
  - Hot flush [None]
  - Pain in extremity [None]
